FAERS Safety Report 5837364-8 (Version None)
Quarter: 2008Q3

REPORT INFORMATION
  Report Type: 
  Country: None (occurrence: None)
  Receive Date: 20080807
  Receipt Date: 20080731
  Transmission Date: 20090109
  Serious: Yes (Hospitalization)
  Sender: FDA-Public Use
  Company Number: US-ELI_LILLY_AND_COMPANY-US200807006473

PATIENT
  Sex: Female

DRUGS (12)
  1. BYETTA [Suspect]
     Indication: TYPE 2 DIABETES MELLITUS
  2. GLUCOTROL [Concomitant]
     Indication: TYPE 2 DIABETES MELLITUS
  3. ZOLOFT [Concomitant]
  4. CARDIZEM [Concomitant]
  5. DIURETICS [Concomitant]
     Indication: FLUID RETENTION
  6. LOVASTATIN [Concomitant]
  7. ASPIRIN [Concomitant]
  8. CALCIUM CARBONATE [Concomitant]
  9. MULTI-VITAMIN [Concomitant]
  10. HUMALOG [Concomitant]
     Dosage: UNK, AS NEEDED
     Dates: start: 20080601
  11. LANTUS [Concomitant]
     Dosage: UNK, EACH EVENING
     Dates: start: 20080601
  12. REGULAR INSULIN [Concomitant]
     Dates: start: 20080601

REACTIONS (6)
  - ABDOMINAL PAIN [None]
  - BLOOD GLUCOSE DECREASED [None]
  - BLOOD GLUCOSE INCREASED [None]
  - GASTRIC DISORDER [None]
  - MALAISE [None]
  - PANCREATIC DISORDER [None]
